FAERS Safety Report 24227062 (Version 3)
Quarter: 2024Q3

REPORT INFORMATION
  Report Type: Spontaneous
  Country: US (occurrence: US)
  Receive Date: 20240820
  Receipt Date: 20240920
  Transmission Date: 20241017
  Serious: No
  Sender: PFIZER
  Company Number: US-PFIZER INC-202400236148

PATIENT
  Age: 14 Year
  Sex: Female
  Weight: 43.084 kg

DRUGS (3)
  1. GENOTROPIN [Suspect]
     Active Substance: SOMATROPIN
     Indication: Short stature
     Dosage: 1.6 MG
  2. GENOTROPIN [Suspect]
     Active Substance: SOMATROPIN
     Dosage: 0.86 MG DAILY EXCEPT SUNDAY
     Route: 058
     Dates: start: 2014
  3. LEVOTHYROXINE [Concomitant]
     Active Substance: LEVOTHYROXINE\LEVOTHYROXINE SODIUM
     Indication: Hypothyroidism
     Dosage: 1.4 MG

REACTIONS (4)
  - Device use issue [Unknown]
  - Device information output issue [Unknown]
  - Device use error [Unknown]
  - Drug dose omission by device [Unknown]
